FAERS Safety Report 5330404-4 (Version None)
Quarter: 2007Q2

REPORT INFORMATION
  Report Type: 
  Country: None (occurrence: None)
  Receive Date: 20070515
  Receipt Date: 20070503
  Transmission Date: 20071010
  Serious: Yes (Hospitalization)
  Sender: FDA-Public Use
  Company Number: 07-001009

PATIENT
  Age: 34 Year
  Sex: Female

DRUGS (1)
  1. DORYX [Suspect]
     Dosage: 300 MG, QD,
     Dates: start: 19851101, end: 19851201

REACTIONS (1)
  - STEVENS-JOHNSON SYNDROME [None]
